FAERS Safety Report 4927306-1 (Version None)
Quarter: 2006Q1

REPORT INFORMATION
  Report Type: 
  Country: None (occurrence: None)
  Receive Date: 20060228
  Receipt Date: 20050622
  Transmission Date: 20060701
  Serious: No
  Sender: FDA-Public Use
  Company Number: US-GLAXOSMITHKLINE-A0563828A

PATIENT
  Age: 50 Year
  Sex: Female
  Weight: 54.5 kg

DRUGS (1)
  1. IMITREX [Suspect]
     Indication: MIGRAINE

REACTIONS (2)
  - DRUG INEFFECTIVE [None]
  - PHARMACEUTICAL PRODUCT COMPLAINT [None]
